FAERS Safety Report 15348603 (Version 1)
Quarter: 2018Q3

REPORT INFORMATION
  Report Type: Spontaneous
  Country: US (occurrence: US)
  Receive Date: 20180904
  Receipt Date: 20180904
  Transmission Date: 20181010
  Serious: No
  Sender: FDA-Public Use
  Company Number: US-OREXO US, INC.-ORE201806-000072

PATIENT
  Age: 41 Year
  Sex: Female

DRUGS (9)
  1. DICYCLOVERINE [Concomitant]
     Active Substance: DICYCLOMINE HYDROCHLORIDE
     Indication: ABDOMINAL PAIN UPPER
  2. GABAPENTIN. [Concomitant]
     Active Substance: GABAPENTIN
     Indication: SEIZURE
  3. ZUBSOLV [Suspect]
     Active Substance: BUPRENORPHINE HYDROCHLORIDE\NALOXONE HYDROCHLORIDE
  4. BUPRENORPHINE / NALOXONE [Suspect]
     Active Substance: BUPRENORPHINE\NALOXONE
     Indication: DRUG DEPENDENCE
     Dosage: ONE 8 MG FILM; TWICE DAILY
     Route: 060
     Dates: start: 20180322
  5. PROTONIX [Concomitant]
     Active Substance: PANTOPRAZOLE SODIUM
     Indication: GASTROOESOPHAGEAL REFLUX DISEASE
  6. BUPRENORPHINE / NALOXONE [Suspect]
     Active Substance: BUPRENORPHINE\NALOXONE
     Route: 060
  7. ZOFRAN [Concomitant]
     Active Substance: ONDANSETRON HYDROCHLORIDE
  8. CLONAZEPAM. [Concomitant]
     Active Substance: CLONAZEPAM
     Indication: ANXIETY
  9. DICYCLOVERINE [Concomitant]
     Active Substance: DICYCLOMINE HYDROCHLORIDE
     Indication: ULCER

REACTIONS (20)
  - Gastrointestinal disorder [Unknown]
  - Drug withdrawal syndrome [Unknown]
  - Wrong technique in product usage process [Unknown]
  - Fear [Unknown]
  - Decreased appetite [Unknown]
  - Vomiting [Unknown]
  - Drug dependence [Unknown]
  - Feeling of body temperature change [Unknown]
  - Depressed mood [Unknown]
  - Diarrhoea [Unknown]
  - Restlessness [Unknown]
  - Feeling abnormal [Unknown]
  - Insomnia [Unknown]
  - Dry mouth [Unknown]
  - Hyperhidrosis [Unknown]
  - Fatigue [Unknown]
  - Product use issue [Unknown]
  - Salivary hypersecretion [Unknown]
  - Pain [Unknown]
  - Malaise [Unknown]
